FAERS Safety Report 14757236 (Version 1)
Quarter: 2018Q2

REPORT INFORMATION
  Report Type: Spontaneous
  Country: US (occurrence: US)
  Receive Date: 20180408
  Receipt Date: 20180408
  Transmission Date: 20180711
  Serious: Yes (Life-Threatening, Hospitalization)
  Sender: FDA-Public Use
  Company Number: None

PATIENT
  Age: 52 Year
  Sex: Female
  Weight: 95.4 kg

DRUGS (1)
  1. CELECOXIB 200 MG PO CAP [Suspect]
     Active Substance: CELECOXIB
     Indication: KNEE ARTHROPLASTY
     Dosage: ?          QUANTITY:1 CAPSULE(S);?
     Route: 048
     Dates: start: 20180326, end: 20180327

REACTIONS (5)
  - Gastrointestinal haemorrhage [None]
  - Haematemesis [None]
  - Haemoglobin decreased [None]
  - Odynophagia [None]
  - Oesophagitis [None]

NARRATIVE: CASE EVENT DATE: 20180327
